FAERS Safety Report 5924888-8 (Version None)
Quarter: 2008Q4

REPORT INFORMATION
  Report Type: 
  Country: None (occurrence: None)
  Receive Date: 20081017
  Receipt Date: 20081017
  Transmission Date: 20090506
  Serious: Yes (Other)
  Sender: FDA-Public Use
  Company Number: None

PATIENT
  Age: 57 Year
  Sex: Female
  Weight: 65.7716 kg

DRUGS (1)
  1. PRAVASTATIN [Suspect]
     Indication: HYPERCHOLESTEROLAEMIA
     Dosage: 40MG AT HS PO
     Route: 048
     Dates: start: 20081014, end: 20081016

REACTIONS (3)
  - HEADACHE [None]
  - HYPOAESTHESIA [None]
  - MYALGIA [None]
